FAERS Safety Report 24985467 (Version 1)
Quarter: 2025Q1

REPORT INFORMATION
  Report Type: Spontaneous
  Country: GB (occurrence: GB)
  Receive Date: 20250219
  Receipt Date: 20250219
  Transmission Date: 20250409
  Serious: Yes (Hospitalization, Other)
  Sender: AMGEN
  Company Number: GB-AMGEN-GBRSP2025030112

PATIENT
  Age: 45 Year

DRUGS (1)
  1. USTEKINUMAB [Suspect]
     Active Substance: USTEKINUMAB
     Indication: Product used for unknown indication
     Route: 065
     Dates: start: 202401

REACTIONS (1)
  - Nasal vestibulitis [Not Recovered/Not Resolved]
